FAERS Safety Report 8969457 (Version 1)
Quarter: 2012Q4

REPORT INFORMATION
  Report Type: Report from Study
  Country: US (occurrence: US)
  Receive Date: 20121218
  Receipt Date: 20121218
  Transmission Date: 20130627
  Serious: Yes (Hospitalization)
  Sender: FDA-Public Use
  Company Number: US-US-EMD SERONO, INC.-7181608

PATIENT
  Sex: Female

DRUGS (2)
  1. REBIF [Suspect]
     Indication: PRODUCT USED FOR UNKNOWN INDICATION
     Route: 058
     Dates: start: 20121005, end: 201211
  2. REBIF [Suspect]
     Route: 058
     Dates: start: 20121210

REACTIONS (4)
  - Pneumonia [Unknown]
  - Sinusitis [Unknown]
  - Bronchitis [Unknown]
  - Vitamin C deficiency [Unknown]
